FAERS Safety Report 12561915 (Version 1)
Quarter: 2016Q3

REPORT INFORMATION
  Report Type: Spontaneous
  Country: US (occurrence: US)
  Receive Date: 20160715
  Receipt Date: 20160715
  Transmission Date: 20161109
  Serious: Yes (Death, Other)
  Sender: FDA-Public Use
  Company Number: US-BRISTOL-MYERS SQUIBB COMPANY-BMS-2016-057131

PATIENT
  Sex: Male

DRUGS (12)
  1. OPDIVO [Suspect]
     Active Substance: NIVOLUMAB
     Dosage: 96 MG, UNK
     Route: 065
     Dates: start: 20160309
  2. YERVOY [Suspect]
     Active Substance: IPILIMUMAB
     Dosage: 286 MG, UNK
     Route: 065
     Dates: start: 20160330
  3. OPDIVO [Suspect]
     Active Substance: NIVOLUMAB
     Dosage: 292 MG, UNK
     Route: 065
     Dates: start: 20160121
  4. YERVOY [Suspect]
     Active Substance: IPILIMUMAB
     Indication: METASTATIC MALIGNANT MELANOMA
     Dosage: 286 MG, UNK
     Route: 065
     Dates: start: 20160309
  5. OPDIVO [Suspect]
     Active Substance: NIVOLUMAB
     Dosage: 96 MG, UNK
     Route: 065
     Dates: start: 20160511
  6. YERVOY [Suspect]
     Active Substance: IPILIMUMAB
     Dosage: 286 MG, UNK
     Route: 065
     Dates: start: 20160422
  7. OPDIVO [Suspect]
     Active Substance: NIVOLUMAB
     Indication: METASTATIC MALIGNANT MELANOMA
     Dosage: 292 MG, UNK
     Route: 065
     Dates: start: 20160108
  8. OPDIVO [Suspect]
     Active Substance: NIVOLUMAB
     Dosage: 292 MG, UNK
     Route: 065
     Dates: start: 20160204
  9. OPDIVO [Suspect]
     Active Substance: NIVOLUMAB
     Dosage: 292 MG, UNK
     Route: 065
     Dates: start: 20160219
  10. OPDIVO [Suspect]
     Active Substance: NIVOLUMAB
     Dosage: 96 MG, UNK
     Route: 065
     Dates: start: 20160330
  11. OPDIVO [Suspect]
     Active Substance: NIVOLUMAB
     Dosage: 96 MG, UNK
     Route: 065
     Dates: start: 20160422
  12. YERVOY [Suspect]
     Active Substance: IPILIMUMAB
     Dosage: 286 MG, UNK
     Route: 065
     Dates: start: 20160511

REACTIONS (1)
  - Death [Fatal]
